FAERS Safety Report 6807287-6 (Version None)
Quarter: 2010Q2

REPORT INFORMATION
  Report Type: 
  Country: None (occurrence: None)
  Receive Date: 20100628
  Receipt Date: 20100628
  Transmission Date: 20101027
  Serious: Yes (Life-Threatening, Hospitalization, Other)
  Sender: FDA-Public Use
  Company Number: None

PATIENT
  Age: 48 Year
  Sex: Female
  Weight: 61.2356 kg

DRUGS (11)
  1. FERAHEME [Suspect]
     Indication: IRON DEFICIENCY ANAEMIA
     Dosage: 510 MG WEEKLY IV BOLUS
     Route: 040
     Dates: start: 20100316, end: 20100316
  2. FERAHEME [Suspect]
     Indication: IRON DEFICIENCY ANAEMIA
     Dosage: 510 MG WEEKLY IV BOLUS
     Route: 040
     Dates: start: 20100323, end: 20100323
  3. ASPIRIN [Concomitant]
  4. NITROGLYCERIN [Concomitant]
  5. SIMVASTIN [Concomitant]
  6. PLAVIX [Concomitant]
  7. CARVEDILOL [Concomitant]
  8. CO2 [Concomitant]
  9. SPIRONOLACTONE [Concomitant]
  10. EFLORNITHINE TOPICAL [Concomitant]
  11. .. [Concomitant]

REACTIONS (2)
  - ELECTROCARDIOGRAM ST SEGMENT ELEVATION [None]
  - MYOCARDIAL INFARCTION [None]
